FAERS Safety Report 8915795 (Version 2)
Quarter: 2012Q4

REPORT INFORMATION
  Report Type: 
  Country: US (occurrence: US)
  Receive Date: 20121119
  Receipt Date: 20121212
  Transmission Date: 20130627
  Serious: No
  Sender: FDA-Public Use
  Company Number: US-PFIZER INC-2012288438

PATIENT
  Age: 52 Year
  Sex: Female
  Weight: 68.03 kg

DRUGS (3)
  1. LYRICA [Suspect]
     Indication: ROTATOR CUFF TEAR
     Dosage: 75 mg, 3x/day
     Dates: start: 2012
  2. LYRICA [Suspect]
     Indication: FIBROMYALGIA
  3. PROZAC [Concomitant]
     Dosage: 20 mg, daily

REACTIONS (5)
  - Pain [Unknown]
  - Nasopharyngitis [Not Recovered/Not Resolved]
  - Headache [Unknown]
  - Sinusitis [Unknown]
  - Oropharyngeal pain [Unknown]
